FAERS Safety Report 9805876 (Version 1)
Quarter: 2014Q1

REPORT INFORMATION
  Report Type: Report from Study
  Country: TR (occurrence: TR)
  Receive Date: 20140109
  Receipt Date: 20140109
  Transmission Date: 20141002
  Serious: Yes (Hospitalization)
  Sender: FDA-Public Use
  Company Number: TR-SA-2014SA000645

PATIENT
  Sex: Male
  Weight: 62 kg

DRUGS (11)
  1. PLAVIX [Suspect]
     Indication: PRODUCT USED FOR UNKNOWN INDICATION
     Route: 065
  2. CORASPIN [Suspect]
     Indication: PRODUCT USED FOR UNKNOWN INDICATION
     Route: 065
  3. ACE INHIBITOR NOS [Concomitant]
     Indication: CARDIAC FAILURE
     Dates: start: 19990501
  4. ACE INHIBITOR NOS [Concomitant]
     Indication: HYPERTENSION
     Dates: start: 19990501
  5. ACE INHIBITOR NOS [Concomitant]
     Indication: CORONARY ARTERY DISEASE
     Dates: start: 19990501
  6. BETA BLOCKING AGENTS [Concomitant]
     Indication: CARDIAC FAILURE
     Dates: start: 19990501
  7. BETA BLOCKING AGENTS [Concomitant]
     Indication: HYPERTENSION
     Dates: start: 19990501
  8. BETA BLOCKING AGENTS [Concomitant]
     Indication: CORONARY ARTERY DISEASE
     Dates: start: 19990501
  9. DIURETICS [Concomitant]
     Indication: HYPERTENSION
  10. ASPIRIN [Concomitant]
     Indication: CORONARY ARTERY DISEASE
  11. ORAL ANTIDIABETICS [Concomitant]
     Indication: DIABETES MELLITUS
     Route: 048

REACTIONS (1)
  - Cardiac pacemaker insertion [Unknown]
